FAERS Safety Report 17487804 (Version 9)
Quarter: 2023Q4

REPORT INFORMATION
  Report Type: Spontaneous
  Country: US (occurrence: US)
  Receive Date: 20200303
  Receipt Date: 20231218
  Transmission Date: 20240110
  Serious: Yes (Other)
  Sender: FDA-Public Use
  Company Number: US-PFIZER INC-2019293190

PATIENT
  Age: 80 Year
  Sex: Male
  Weight: 109.32 kg

DRUGS (4)
  1. BOSULIF [Suspect]
     Active Substance: BOSUTINIB MONOHYDRATE
     Indication: Philadelphia positive chronic myeloid leukaemia
     Dosage: TAKE 2 TABLETS (200 MG TOTAL) BY MOUTH DAILY WITH FOOD
     Route: 048
     Dates: start: 2017
  2. BOSULIF [Suspect]
     Active Substance: BOSUTINIB MONOHYDRATE
     Dosage: TWO 100 MG TABLETS, BY MOUTH, ONCE IN THE MORNING
     Route: 048
     Dates: start: 20200301, end: 20200918
  3. BOSULIF [Suspect]
     Active Substance: BOSUTINIB MONOHYDRATE
     Dosage: [TAKE 2 TABLETS (200 MG TOTAL) BY MOUTH DAILY WITH FOOD
     Route: 048
  4. GLIPIZIDE [Concomitant]
     Active Substance: GLIPIZIDE
     Dosage: UNK, DAILY

REACTIONS (2)
  - Carotid artery disease [Not Recovered/Not Resolved]
  - Pericardial effusion [Unknown]

NARRATIVE: CASE EVENT DATE: 20180101
